FAERS Safety Report 8100948 (Version 2)
Quarter: 2013Q3

REPORT INFORMATION
  Report Type: Spontaneous
  Country: US (occurrence: US)
  Receive Date: 20110822
  Receipt Date: 20130924
  Transmission Date: 20140515
  Serious: Yes (Hospitalization, Other)
  Sender: FDA-Public Use
  Company Number: US-ASTRAZENECA-2011SE48891

PATIENT
  Age: 81 Year
  Sex: Male
  Weight: 74.8 kg

DRUGS (4)
  1. TOPROL XL [Suspect]
     Route: 048
  2. VIOXX [Suspect]
  3. OTHER MEDICATIONS [Concomitant]
  4. INJECTIONS [Concomitant]
     Dosage: EVERY 4 MONTHS FOR 2 TO 3 YEARS

REACTIONS (12)
  - Hepatic cancer [Unknown]
  - Liver disorder [Unknown]
  - Large intestinal haemorrhage [Unknown]
  - Tuberculosis [Unknown]
  - Hypoacusis [Unknown]
  - Arthritis [Unknown]
  - Osteoarthritis [Unknown]
  - Lung infection [Unknown]
  - Impaired driving ability [Unknown]
  - Memory impairment [Unknown]
  - Vision blurred [Unknown]
  - Wrong drug administered [Unknown]
